FAERS Safety Report 8368882-9 (Version None)
Quarter: 2012Q2

REPORT INFORMATION
  Report Type: 
  Country: None (occurrence: None)
  Receive Date: 20120516
  Receipt Date: 20120501
  Transmission Date: 20120825
  Serious: Yes (Congenital Anomaly)
  Sender: FDA-Public Use
  Company Number: LETR20120001

PATIENT
  Sex: Female
  Weight: 2.75 kg

DRUGS (2)
  1. LETROZOLE [Suspect]
     Indication: MATERNAL DRUGS AFFECTING FOETUS
     Dosage: 5 MG, INTRANSPLACENTAL
  2. FOLIC ACID [Concomitant]

REACTIONS (2)
  - MICROTIA [None]
  - MATERNAL DRUGS AFFECTING FOETUS [None]
